FAERS Safety Report 17106007 (Version 4)
Quarter: 2020Q1

REPORT INFORMATION
  Report Type: Spontaneous
  Country: JP (occurrence: JP)
  Receive Date: 20191203
  Receipt Date: 20200117
  Transmission Date: 20200409
  Serious: Yes (Other)
  Sender: FDA-Public Use
  Company Number: JP-PFIZER INC-2019518264

PATIENT
  Age: 56 Year
  Sex: Male

DRUGS (3)
  1. LOXONIN [Suspect]
     Active Substance: LOXOPROFEN SODIUM
     Indication: CERVICAL RADICULOPATHY
     Dosage: 60 MG, 3X/DAY
     Route: 048
     Dates: start: 20191115, end: 20191128
  2. MUCOSTA [Concomitant]
     Active Substance: REBAMIPIDE
     Indication: CERVICAL RADICULOPATHY
     Dosage: 100 (UNIT UNKNOWN), 3X/DAY
     Route: 048
     Dates: start: 20191115, end: 20191128
  3. LYRICA [Suspect]
     Active Substance: PREGABALIN
     Indication: CERVICAL RADICULOPATHY
     Dosage: 150 MG, DAILY
     Route: 048
     Dates: start: 20191114, end: 20191128

REACTIONS (5)
  - Pleural effusion [Recovered/Resolved]
  - Pulmonary oedema [Recovered/Resolved]
  - Dyspnoea [Recovered/Resolved]
  - Pulmonary congestion [Recovered/Resolved]
  - Oedema peripheral [Recovered/Resolved]

NARRATIVE: CASE EVENT DATE: 201911
